FAERS Safety Report 13350566 (Version 1)
Quarter: 2017Q1

REPORT INFORMATION
  Report Type: Spontaneous
  Country: IT (occurrence: IT)
  Receive Date: 20170320
  Receipt Date: 20170320
  Transmission Date: 20170429
  Serious: Yes (Other)
  Sender: FDA-Public Use
  Company Number: IT-GLENMARK PHARMACEUTICALS-2017GMK026793

PATIENT
  Age: 66 Year
  Sex: Male

DRUGS (1)
  1. IMIQUIMOD. [Suspect]
     Active Substance: IMIQUIMOD
     Indication: CARCINOMA IN SITU OF PENIS
     Dosage: UNK
     Route: 061

REACTIONS (5)
  - Application site pain [Unknown]
  - Therapy non-responder [Unknown]
  - Carcinoma in situ of penis [Unknown]
  - Application site erythema [Unknown]
  - Disease progression [Unknown]
